FAERS Safety Report 8269196-8 (Version None)
Quarter: 2012Q2

REPORT INFORMATION
  Report Type: 
  Country: None (occurrence: None)
  Receive Date: 20120409
  Receipt Date: 20120403
  Transmission Date: 20120825
  Serious: Yes (Other)
  Sender: FDA-Public Use
  Company Number: CHPA2012US006173

PATIENT
  Age: 86 Year
  Sex: Female

DRUGS (3)
  1. TRAMADOL HCL [Concomitant]
     Indication: ARTHRITIS
     Dosage: 0.5DF
  2. PREVACID 24 HR [Suspect]
     Dosage: 15 OR 30 MG, QD
     Route: 048
     Dates: start: 20090101
  3. VITAMINS NOS [Concomitant]

REACTIONS (7)
  - OVERDOSE [None]
  - DRUG INEFFECTIVE FOR UNAPPROVED INDICATION [None]
  - EYE PRURITUS [None]
  - BLOOD CHOLESTEROL INCREASED [None]
  - SEASONAL ALLERGY [None]
  - INCORRECT DRUG ADMINISTRATION DURATION [None]
  - DRUG INEFFECTIVE [None]
